FAERS Safety Report 9061718 (Version 1)
Quarter: 2013Q1

REPORT INFORMATION
  Report Type: Spontaneous
  Country: GB (occurrence: GB)
  Receive Date: 20130204
  Receipt Date: 20130204
  Transmission Date: 20140127
  Serious: Yes (Other)
  Sender: FDA-Public Use
  Company Number: GB-BRISTOL-MYERS SQUIBB COMPANY-17315102

PATIENT
  Age: 63 Year
  Sex: Female

DRUGS (5)
  1. AMIKIN [Suspect]
     Indication: MYCOBACTERIUM ABSCESSUS INFECTION
     Dosage: 1MAR12-29JUN12 (120 INFUSIONS)?750MG/D FROM 29JUN12-24JUL12 (26 INFUSIONS)
     Route: 042
     Dates: start: 20120301, end: 20120724
  2. CLARITHROMYCIN [Concomitant]
  3. LANSOPRAZOLE [Concomitant]
  4. ANASTROZOLE [Concomitant]
  5. FERROUS SULFATE [Concomitant]

REACTIONS (2)
  - Deafness [Not Recovered/Not Resolved]
  - Infusion site infection [Unknown]
